FAERS Safety Report 18754630 (Version 1)
Quarter: 2021Q1

REPORT INFORMATION
  Report Type: Spontaneous
  Country: CN (occurrence: CN)
  Receive Date: 20210119
  Receipt Date: 20210119
  Transmission Date: 20210419
  Serious: Yes (Other)
  Sender: FDA-Public Use
  Company Number: CN-SUN PHARMACEUTICAL INDUSTRIES LTD-2021R1-276279

PATIENT
  Age: 76 Year
  Sex: Male

DRUGS (1)
  1. CARBOPLATIN. [Suspect]
     Active Substance: CARBOPLATIN
     Indication: SMALL CELL LUNG CANCER
     Dosage: 300 MILLIGRAM(DAY 1, EVERY 3 WEEKS), 4 CYCLES
     Route: 065
     Dates: start: 20160805

REACTIONS (1)
  - Therapy partial responder [Unknown]
